FAERS Safety Report 20335876 (Version 1)
Quarter: 2022Q1

REPORT INFORMATION
  Report Type: Spontaneous
  Country: CN (occurrence: None)
  Receive Date: 20220114
  Receipt Date: 20220114
  Transmission Date: 20220423
  Serious: Yes (Other)
  Sender: FDA-Public Use
  Company Number: 2022A013824

PATIENT
  Age: 16071 Day
  Sex: Male

DRUGS (1)
  1. DAPAGLIFLOZIN [Suspect]
     Active Substance: DAPAGLIFLOZIN
     Indication: Type 2 diabetes mellitus
     Route: 048
     Dates: start: 20210108, end: 20211227

REACTIONS (1)
  - Diabetic ketosis [Recovering/Resolving]

NARRATIVE: CASE EVENT DATE: 20211227
